FAERS Safety Report 6557559-8 (Version None)
Quarter: 2010Q1

REPORT INFORMATION
  Report Type: 
  Country: None (occurrence: None)
  Receive Date: 20100129
  Receipt Date: 20100122
  Transmission Date: 20100710
  Serious: Yes (Hospitalization)
  Sender: FDA-Public Use
  Company Number: DE-ROCHE-681721

PATIENT
  Age: 67 Year
  Sex: Female

DRUGS (4)
  1. BONIVA [Suspect]
     Indication: DRUG USE FOR UNKNOWN INDICATION
     Dosage: TWO ADMINISTRATIONS RECEIVED UNTIL THIS REPORT
     Route: 065
  2. BELOC [Concomitant]
  3. DIOVAN HCT [Concomitant]
  4. PANTOPRAZOLE [Concomitant]

REACTIONS (3)
  - HYPERTENSION [None]
  - PALPITATIONS [None]
  - RESTLESSNESS [None]
